FAERS Safety Report 4360147-5 (Version None)
Quarter: 2004Q2

REPORT INFORMATION
  Report Type: 
  Country: None (occurrence: None)
  Receive Date: 20040513
  Receipt Date: 20040429
  Transmission Date: 20050107
  Serious: Yes (Death)
  Sender: FDA-Public Use
  Company Number: 163-20785-03120473

PATIENT
  Age: 75 Year
  Sex: Male

DRUGS (1)
  1. THALOMID [Suspect]
     Indication: MALIGNANT MELANOMA
     Dosage: 200 MG, DAILY, ORAL
     Route: 048
     Dates: start: 20030623, end: 20030101

REACTIONS (7)
  - DRUG INEFFECTIVE [None]
  - LUNG NEOPLASM [None]
  - MALIGNANT MELANOMA [None]
  - MALIGNANT NEOPLASM PROGRESSION [None]
  - MEDIASTINAL DISORDER [None]
  - MENTAL STATUS CHANGES [None]
  - METASTASES TO CENTRAL NERVOUS SYSTEM [None]
